FAERS Safety Report 14807285 (Version 1)
Quarter: 2018Q2

REPORT INFORMATION
  Report Type: Spontaneous
  Country: US (occurrence: US)
  Receive Date: 20180425
  Receipt Date: 20180425
  Transmission Date: 20180711
  Serious: Yes (Other)
  Sender: FDA-Public Use
  Company Number: US-GLAXOSMITHKLINE-US2018067048

PATIENT
  Age: 43 Year
  Sex: Female

DRUGS (10)
  1. BENLYSTA [Suspect]
     Active Substance: BELIMUMAB
     Indication: SYSTEMIC LUPUS ERYTHEMATOSUS
     Dosage: UNK
     Route: 042
     Dates: start: 201705
  2. FENTANYL TRANSDERMAL SYSTEM [Concomitant]
     Active Substance: FENTANYL
  3. VENTOLIN [Concomitant]
     Active Substance: ALBUTEROL SULFATE
  4. DRONABINOL. [Concomitant]
     Active Substance: DRONABINOL
     Dosage: 10 MG, UNK
  5. PAXIL [Suspect]
     Active Substance: PAROXETINE HYDROCHLORIDE
     Indication: PRODUCT USED FOR UNKNOWN INDICATION
     Dosage: 40 MG, QD
     Dates: start: 201802
  6. METHOTREXATE. [Concomitant]
     Active Substance: METHOTREXATE
     Dosage: UNK, WE
     Route: 042
  7. PROPRANOLOL [Concomitant]
     Active Substance: PROPRANOLOL HYDROCHLORIDE
  8. TIZANIDINE. [Concomitant]
     Active Substance: TIZANIDINE
  9. XANAX [Concomitant]
     Active Substance: ALPRAZOLAM
  10. ZOLOFT [Suspect]
     Active Substance: SERTRALINE HYDROCHLORIDE
     Indication: PRODUCT USED FOR UNKNOWN INDICATION
     Dosage: UNK
     Dates: end: 201802

REACTIONS (12)
  - Drug effect incomplete [Not Recovered/Not Resolved]
  - Muscle spasms [Not Recovered/Not Resolved]
  - Systemic lupus erythematosus [Unknown]
  - Panic attack [Unknown]
  - Pain [Unknown]
  - Nausea [Unknown]
  - Fatigue [Unknown]
  - Headache [Recovered/Resolved]
  - Depression [Not Recovered/Not Resolved]
  - Feeling abnormal [Unknown]
  - Anxiety [Not Recovered/Not Resolved]
  - Menopause [Unknown]

NARRATIVE: CASE EVENT DATE: 20171201
